FAERS Safety Report 12195626 (Version 1)
Quarter: 2016Q1

REPORT INFORMATION
  Report Type: Spontaneous
  Country: US (occurrence: US)
  Receive Date: 20160321
  Receipt Date: 20160321
  Transmission Date: 20160526
  Serious: Yes (Hospitalization)
  Sender: FDA-Public Use
  Company Number: US-MEDA-2016030032

PATIENT
  Sex: Female
  Weight: 100 kg

DRUGS (1)
  1. SOMA [Suspect]
     Active Substance: CARISOPRODOL
     Indication: MUSCULOSKELETAL PAIN
     Route: 048

REACTIONS (5)
  - Hypertension [Not Recovered/Not Resolved]
  - Myocardial infarction [Recovered/Resolved]
  - Urticaria [Recovered/Resolved]
  - Weight decreased [Unknown]
  - Drug hypersensitivity [Not Recovered/Not Resolved]

NARRATIVE: CASE EVENT DATE: 2013
